FAERS Safety Report 17610122 (Version 1)
Quarter: 2020Q2

REPORT INFORMATION
  Report Type: Spontaneous
  Country: SV (occurrence: SV)
  Receive Date: 20200401
  Receipt Date: 20200401
  Transmission Date: 20200713
  Serious: Yes (Other)
  Sender: FDA-Public Use
  Company Number: SV-SA-2020SA071828

PATIENT
  Sex: Female
  Weight: 76.65 kg

DRUGS (1)
  1. COAPROVEL [Suspect]
     Active Substance: HYDROCHLOROTHIAZIDE\IRBESARTAN
     Indication: CARDIAC DISORDER
     Dosage: 1 DF, QD
     Route: 048
     Dates: start: 2019

REACTIONS (4)
  - Walking disability [Unknown]
  - Hip fracture [Unknown]
  - Fall [Unknown]
  - Bedridden [Unknown]

NARRATIVE: CASE EVENT DATE: 20190901
